FAERS Safety Report 9979937 (Version 1)
Quarter: 2014Q1

REPORT INFORMATION
  Report Type: Report from Study
  Country: US (occurrence: US)
  Receive Date: 20140306
  Receipt Date: 20140306
  Transmission Date: 20141002
  Serious: No
  Sender: FDA-Public Use
  Company Number: US-ABBVIE-13P-163-1172536-00

PATIENT
  Age: 33 Year
  Sex: Female

DRUGS (10)
  1. HUMIRA [Suspect]
     Indication: PSORIATIC ARTHROPATHY
     Dates: start: 20131031
  2. MELOXICAM [Concomitant]
     Indication: ARTHRALGIA
  3. PREDNISONE [Concomitant]
     Indication: ARTHRALGIA
  4. PREDNISONE [Concomitant]
     Indication: INFLAMMATION
  5. METHOTREXATE [Concomitant]
     Indication: PSORIATIC ARTHROPATHY
  6. GABAPENTIN [Concomitant]
     Indication: NERVOUSNESS
  7. DICYCLOMINE [Concomitant]
     Indication: IRRITABLE BOWEL SYNDROME
  8. FOLIC ACID [Concomitant]
     Indication: VITAMIN SUPPLEMENTATION
  9. VIT D [Concomitant]
     Indication: VITAMIN SUPPLEMENTATION
  10. NABUMETONE [Concomitant]
     Indication: ARTHRALGIA

REACTIONS (4)
  - Skin wound [Not Recovered/Not Resolved]
  - Pruritus [Not Recovered/Not Resolved]
  - Psoriatic arthropathy [Not Recovered/Not Resolved]
  - Psoriatic arthropathy [Not Recovered/Not Resolved]
